FAERS Safety Report 22309800 (Version 1)
Quarter: 2023Q2

REPORT INFORMATION
  Report Type: Spontaneous
  Country: US (occurrence: None)
  Receive Date: 20230510
  Receipt Date: 20230510
  Transmission Date: 20230721
  Serious: No
  Sender: FDA-Public Use
  Company Number: None

PATIENT
  Age: 37 Year
  Sex: Female
  Weight: 117 kg

DRUGS (1)
  1. LIDOCAINE VISCOUS [Suspect]
     Active Substance: LIDOCAINE HYDROCHLORIDE
     Indication: Abscess oral
     Dosage: OTHER QUANTITY : 15 OUNCE(S);?FREQUENCY : 3 TIMES A DAY;?
     Route: 048
     Dates: start: 20230124, end: 20230202

REACTIONS (6)
  - Drug ineffective [None]
  - Condition aggravated [None]
  - Mouth swelling [None]
  - Fluid intake reduced [None]
  - Night sweats [None]
  - Recalled product administered [None]
